FAERS Safety Report 18915035 (Version 1)
Quarter: 2021Q1

REPORT INFORMATION
  Report Type: Report from Study
  Country: GB (occurrence: GB)
  Receive Date: 20210218
  Receipt Date: 20210218
  Transmission Date: 20210420
  Serious: Yes (Hospitalization)
  Sender: FDA-Public Use
  Company Number: GB-JNJFOC-20210228250

PATIENT
  Age: 36 Year
  Sex: Male
  Weight: 86 kg

DRUGS (8)
  1. STELARA [Suspect]
     Active Substance: USTEKINUMAB
     Indication: PSORIASIS
     Route: 058
     Dates: start: 20160513
  2. OILATUM [PARAFFIN] [Concomitant]
     Dates: start: 20160425, end: 20200422
  3. HARTMANN^S SOLUTION [Concomitant]
     Active Substance: CALCIUM CHLORIDE\POTASSIUM CHLORIDE\SODIUM CHLORIDE\SODIUM LACTATE
     Dates: start: 20180202, end: 20180202
  4. SODIUM CHLORIDE. [Concomitant]
     Active Substance: SODIUM CHLORIDE
     Dates: start: 20180203, end: 20180203
  5. PARACETAMOL [Concomitant]
     Active Substance: ACETAMINOPHEN
     Dates: start: 20180203, end: 20180210
  6. FLUCLOXACILLIN [Concomitant]
     Active Substance: FLUCLOXACILLIN
     Dates: start: 20180202, end: 20180203
  7. TINZAPARIN [Concomitant]
     Active Substance: TINZAPARIN
     Dates: start: 20180202, end: 20180204
  8. CODEINE PHOSPHATE [Concomitant]
     Active Substance: CODEINE PHOSPHATE
     Dates: start: 20180203, end: 20180210

REACTIONS (1)
  - Chest wall abscess [Recovered/Resolved]

NARRATIVE: CASE EVENT DATE: 20180125
